FAERS Safety Report 21050826 (Version 1)
Quarter: 2022Q3

REPORT INFORMATION
  Report Type: Other
  Country: IN (occurrence: None)
  Receive Date: 20220707
  Receipt Date: 20220707
  Transmission Date: 20221027
  Serious: Yes (Death)
  Sender: FDA-Public Use
  Company Number: IN-ROCHE-3132782

PATIENT
  Age: 41 Year
  Sex: Male

DRUGS (5)
  1. CELLCEPT [Suspect]
     Active Substance: MYCOPHENOLATE MOFETIL
     Indication: Renal transplant
     Dosage: 500MG TWICE + 250MG ONCE
     Route: 048
     Dates: start: 20191015
  2. PROGRAF [Concomitant]
     Active Substance: TACROLIMUS
  3. DILTIAZEM [Concomitant]
     Active Substance: DILTIAZEM
  4. CALCIUM CARBONATE\CHOLECALCIFEROL [Concomitant]
     Active Substance: CALCIUM CARBONATE\CHOLECALCIFEROL
  5. RANTAL [Concomitant]

REACTIONS (1)
  - Death [Fatal]
